FAERS Safety Report 6192170-2 (Version None)
Quarter: 2009Q2

REPORT INFORMATION
  Report Type: 
  Country: None (occurrence: None)
  Receive Date: 20090515
  Receipt Date: 20090513
  Transmission Date: 20091009
  Serious: Yes (Death)
  Sender: FDA-Public Use
  Company Number: PHHY2009BR18480

PATIENT
  Sex: Female

DRUGS (5)
  1. DIOVAN [Suspect]
     Indication: HYPERTENSION
     Dosage: HALF TABLET IN THE MORNIING
     Route: 048
  2. FORMOTEROL W/BUDESONIDE [Concomitant]
     Indication: LUNG DISORDER
     Dosage: 3 TIMES DAILY
  3. PREDNISONE [Concomitant]
     Indication: LUNG DISORDER
     Dosage: 1 TABLET DAILY
     Route: 048
  4. AMINOPHYLLINE [Concomitant]
     Indication: LUNG DISORDER
     Dosage: 20 MG, TID
  5. TRAZODONE HYDROCHLORIDE [Concomitant]
     Indication: DEPRESSION
     Dosage: 1 TABLET AT NIGHT
     Route: 048

REACTIONS (2)
  - LUNG INFECTION [None]
  - PNEUMONIA [None]
